FAERS Safety Report 8337675-0 (Version None)
Quarter: 2012Q2

REPORT INFORMATION
  Report Type: 
  Country: None (occurrence: None)
  Receive Date: 20120504
  Receipt Date: 20120504
  Transmission Date: 20120825
  Serious: Yes (Other)
  Sender: FDA-Public Use
  Company Number: None

PATIENT
  Age: 49 Year
  Sex: Male
  Weight: 74.842 kg

DRUGS (1)
  1. MOMETASONE FUROATE [Suspect]
     Indication: PSORIASIS
     Dosage: |DOSAGETEXT: APPLY TO AREA||STRENGTH: 0.1%||FREQ: DAILY||ROUTE: TRANSDERMAL|
     Route: 062
     Dates: start: 20101220, end: 20120420

REACTIONS (4)
  - PRODUCT CONTAINER ISSUE [None]
  - PRODUCT QUALITY ISSUE [None]
  - PRODUCT SUBSTITUTION ISSUE [None]
  - DRUG INEFFECTIVE [None]
